FAERS Safety Report 16804399 (Version 7)
Quarter: 2022Q3

REPORT INFORMATION
  Report Type: Spontaneous
  Country: US (occurrence: US)
  Receive Date: 20190913
  Receipt Date: 20220718
  Transmission Date: 20221027
  Serious: No
  Sender: FDA-Public Use
  Company Number: US-PFIZER INC-2019393777

PATIENT
  Age: 70 Year
  Sex: Female
  Weight: 58 kg

DRUGS (3)
  1. IBRANCE [Suspect]
     Active Substance: PALBOCICLIB
     Indication: Breast cancer metastatic
     Dosage: 125 MG, CYCLIC (DAILY, DAY1-21 EVERY 28 DAYS))
     Route: 048
     Dates: start: 20190831, end: 2019
  2. IBRANCE [Suspect]
     Active Substance: PALBOCICLIB
     Dosage: 100 MG, CYCLIC (D 1-21 Q (EVERY) 28 DAYS)
     Route: 048
     Dates: start: 2019, end: 20190916
  3. IBRANCE [Suspect]
     Active Substance: PALBOCICLIB
     Dosage: 75 MG, CYCLIC (DAILY FOR 14 DAYS, THEN OFF 14 DAYS)
     Route: 048

REACTIONS (6)
  - Off label use [Unknown]
  - Product use issue [Unknown]
  - Dizziness [Unknown]
  - Pain in extremity [Unknown]
  - White blood cell count decreased [Not Recovered/Not Resolved]
  - Epistaxis [Unknown]

NARRATIVE: CASE EVENT DATE: 20190101
